FAERS Safety Report 11265975 (Version 5)
Quarter: 2015Q4

REPORT INFORMATION
  Report Type: Report from Study
  Country: CO (occurrence: CO)
  Receive Date: 20150713
  Receipt Date: 20151127
  Transmission Date: 20160304
  Serious: Yes (Hospitalization, Other)
  Sender: FDA-Public Use
  Company Number: CO-ABBVIE-15K-036-1425363-00

PATIENT
  Age: 66 Year
  Sex: Female
  Weight: 55 kg

DRUGS (2)
  1. HUMIRA [Suspect]
     Active Substance: ADALIMUMAB
     Indication: RHEUMATOID ARTHRITIS
     Route: 058
     Dates: start: 20081127, end: 20150327
  2. METHOTREXATE [Concomitant]
     Active Substance: METHOTREXATE
     Indication: PRODUCT USED FOR UNKNOWN INDICATION

REACTIONS (7)
  - Seizure [Not Recovered/Not Resolved]
  - Hypotension [Recovering/Resolving]
  - Generalised oedema [Recovering/Resolving]
  - Thoracotomy [Unknown]
  - Hypotension [Unknown]
  - Angina unstable [Not Recovered/Not Resolved]
  - Pleural decortication [Unknown]

NARRATIVE: CASE EVENT DATE: 20150704
